FAERS Safety Report 23191139 (Version 1)
Quarter: 2023Q4

REPORT INFORMATION
  Report Type: Report from Study
  Country: KR (occurrence: KR)
  Receive Date: 20231116
  Receipt Date: 20231116
  Transmission Date: 20240109
  Serious: Yes (Hospitalization)
  Sender: FDA-Public Use
  Company Number: KR-MYLANLABS-2023M1119694

PATIENT
  Age: 59 Year
  Sex: Female

DRUGS (15)
  1. AMLODIPINE [Suspect]
     Active Substance: AMLODIPINE BESYLATE
     Indication: Essential hypertension
     Dosage: 1 DAY
     Route: 048
     Dates: start: 20190312
  2. ASPIRIN [Concomitant]
     Active Substance: ASPIRIN
     Indication: Embolism venous
     Dosage: 1 DAY
     Route: 048
     Dates: start: 20170912
  3. OMEGA-3-ACID ETHYL ESTER [Concomitant]
     Active Substance: OMEGA-3-ACID ETHYL ESTERS
     Indication: Hyperlipidaemia
     Dosage: 0.5 DAYS
     Route: 048
     Dates: start: 20170912
  4. METFORMIN HYDROCHLORIDE [Concomitant]
     Active Substance: METFORMIN HYDROCHLORIDE
     Indication: Type 2 diabetes mellitus
     Dosage: UNK
     Route: 048
     Dates: start: 20180612
  5. ATORVASTATIN CALCIUM [Concomitant]
     Active Substance: ATORVASTATIN CALCIUM
     Indication: Hyperlipidaemia
     Dosage: 1 DAY
     Route: 048
     Dates: start: 20190312
  6. ACETYLCYSTEINE [Concomitant]
     Active Substance: ACETYLCYSTEINE
     Indication: Cough
     Dosage: 0.33 DAYS
     Route: 048
     Dates: start: 20190212
  7. BROMHEXINE HYDROCHLORIDE [Concomitant]
     Active Substance: BROMHEXINE HYDROCHLORIDE
     Dosage: UNK
     Route: 065
  8. THEOBROMINE [Concomitant]
     Active Substance: THEOBROMINE
     Indication: Cough
     Dosage: 1 DAY
     Route: 065
     Dates: start: 20190212
  9. DEXAMETHASONE SODIUM PHOSPHATE [Concomitant]
     Active Substance: DEXAMETHASONE SODIUM PHOSPHATE
     Dosage: UNK
     Route: 042
     Dates: start: 20190305, end: 20190305
  10. DEXAMETHASONE SODIUM PHOSPHATE [Concomitant]
     Active Substance: DEXAMETHASONE SODIUM PHOSPHATE
     Dosage: UNK
     Route: 042
     Dates: start: 20190412, end: 20190412
  11. FENTANYL [Concomitant]
     Active Substance: FENTANYL\FENTANYL CITRATE
     Dosage: 1 DAY
     Route: 065
     Dates: start: 20190505
  12. TRAMADOL HYDROCHLORIDE AND ACETAMINOPHEN [Concomitant]
     Active Substance: ACETAMINOPHEN\TRAMADOL HYDROCHLORIDE
     Dosage: 0.5 DAYS
     Route: 048
     Dates: start: 20160524, end: 20190630
  13. LIMAPROST [Concomitant]
     Active Substance: LIMAPROST
     Dosage: 0.5 DAYS (START DATE: 19-OCT-2019)
     Route: 048
  14. PREGABALIN [Concomitant]
     Active Substance: PREGABALIN
     Dosage: 0.5 DAYS
     Route: 048
     Dates: start: 20160524, end: 20190630
  15. HYALURONIDASE [Concomitant]
     Active Substance: HYALURONIDASE
     Dosage: UNK
     Route: 065
     Dates: start: 20190412, end: 20190412

REACTIONS (1)
  - Muscular weakness [Recovered/Resolved]

NARRATIVE: CASE EVENT DATE: 20190524
